FAERS Safety Report 7753553-X (Version None)
Quarter: 2011Q3

REPORT INFORMATION
  Report Type: 
  Country: None (occurrence: None)
  Receive Date: 20110915
  Receipt Date: 20110913
  Transmission Date: 20111222
  Serious: Yes (Hospitalization, Disabling)
  Sender: FDA-Public Use
  Company Number: US-GLAXOSMITHKLINE-A0731819A

PATIENT
  Sex: Male
  Weight: 104.5 kg

DRUGS (9)
  1. ACCUPRIL [Concomitant]
  2. ATENOLOL [Concomitant]
     Dates: start: 20000404, end: 20070410
  3. NOVOLIN 70/30 [Concomitant]
  4. LIPITOR [Concomitant]
     Dates: start: 19981203, end: 20070629
  5. MICROZIDE [Concomitant]
  6. AVANDIA [Suspect]
     Indication: TYPE 2 DIABETES MELLITUS
     Dosage: 4MG TWICE PER DAY
     Route: 048
     Dates: start: 19990101, end: 20070525
  7. HYDROCHLOROTHIAZIDE [Concomitant]
  8. PLETAL [Concomitant]
  9. DILTIAZEM [Concomitant]

REACTIONS (6)
  - PAIN [None]
  - MYOCARDIAL INFARCTION [None]
  - CARDIAC DISORDER [None]
  - OEDEMA [None]
  - CHEST PAIN [None]
  - ACUTE CORONARY SYNDROME [None]
